FAERS Safety Report 5885703-4 (Version None)
Quarter: 2008Q3

REPORT INFORMATION
  Report Type: 
  Country: None (occurrence: None)
  Receive Date: 20080912
  Receipt Date: 20080909
  Transmission Date: 20090109
  Serious: Yes (Death, Life-Threatening, Hospitalization)
  Sender: FDA-Public Use
  Company Number: 208-02452

PATIENT
  Age: 68 Year
  Sex: Female
  Weight: 63.8 kg

DRUGS (6)
  1. VELCADE [Suspect]
     Indication: DRUG USE FOR UNKNOWN INDICATION
     Dosage: 2 MG, INTRAVENOUS; 1MG/M2 INTRAVENOUS
     Route: 042
     Dates: start: 20080701
  2. ACYCLOVIR [Concomitant]
  3. BACTRIM [Concomitant]
  4. SODIUM CHLORIDE 0.9% [Concomitant]
  5. DEXAMETHASONE [Concomitant]
  6. GRANISETRON HCL [Concomitant]

REACTIONS (4)
  - CONDITION AGGRAVATED [None]
  - HEPATIC FAILURE [None]
  - MULTIPLE MYELOMA [None]
  - THROMBOCYTOPENIA [None]
